FAERS Safety Report 8498403-1 (Version None)
Quarter: 2012Q3

REPORT INFORMATION
  Report Type: 
  Country: None (occurrence: None)
  Receive Date: 20120709
  Receipt Date: 20120629
  Transmission Date: 20120928
  Serious: Yes (Hospitalization)
  Sender: FDA-Public Use
  Company Number: NL-ROCHE-1082998

PATIENT
  Sex: Female

DRUGS (3)
  1. AVASTIN [Suspect]
     Indication: COLORECTAL CANCER
     Dosage: DAY 1-11: 525 MG, DAY 12-60: 590 MG
     Route: 042
     Dates: start: 20070913
  2. XELODA [Suspect]
     Indication: COLORECTAL CANCER
     Dosage: DAY 1 : 3600 MG, DAY 2-60 : 200 MG
     Route: 048
     Dates: start: 20070823
  3. OXALIPLATIN [Suspect]
     Indication: COLORECTAL CANCER
     Dosage: DAY 1+2 : 200 MG, DAY 3-6: 120 MG
     Route: 042
     Dates: start: 20070823

REACTIONS (1)
  - PATHOLOGICAL FRACTURE [None]
